FAERS Safety Report 6072829-8 (Version None)
Quarter: 2009Q1

REPORT INFORMATION
  Report Type: 
  Country: None (occurrence: None)
  Receive Date: 20090210
  Receipt Date: 20090128
  Transmission Date: 20090719
  Serious: Yes (Other)
  Sender: FDA-Public Use
  Company Number: GB-BAUSCH-2009BL000386

PATIENT
  Age: 35 Year
  Sex: Female

DRUGS (5)
  1. DEXAMETHASONE TAB [Suspect]
     Indication: ADRENOGENITAL SYNDROME
  2. DEXAMETHASONE TAB [Suspect]
  3. FLUDROCORTISONE [Suspect]
     Indication: ADRENOGENITAL SYNDROME
  4. FLUDROCORTISONE [Suspect]
  5. TOPIRAMATE [Suspect]
     Indication: CONVULSION
     Route: 048
     Dates: start: 20050301

REACTIONS (2)
  - ADRENAL INSUFFICIENCY [None]
  - DRUG INTERACTION [None]
